FAERS Safety Report 21286707 (Version 1)
Quarter: 2022Q3

REPORT INFORMATION
  Report Type: Spontaneous
  Country: US (occurrence: None)
  Receive Date: 20220902
  Receipt Date: 20220902
  Transmission Date: 20221027
  Serious: Yes (Hospitalization)
  Sender: FDA-Public Use
  Company Number: None

PATIENT
  Sex: Male

DRUGS (2)
  1. MYCOPHENOLIC ACID [Suspect]
     Active Substance: MYCOPHENOLIC ACID
     Indication: Renal transplant
     Dosage: 500MG EVERY 12 HOURS BY MOUTH?
     Route: 048
     Dates: start: 20200911
  2. CINACALCET HYDROCHLORIDE [Suspect]
     Active Substance: CINACALCET HYDROCHLORIDE
     Indication: Hyperparathyroidism
     Dosage: 60MG ONCE DAILY BY MOUTH?
     Route: 048
     Dates: start: 20200709

REACTIONS (3)
  - Haematuria [None]
  - COVID-19 [None]
  - Urinary tract infection [None]
